FAERS Safety Report 8981383 (Version 1)
Quarter: 2012Q4

REPORT INFORMATION
  Report Type: 
  Country: US (occurrence: US)
  Receive Date: 20121221
  Receipt Date: 20121221
  Transmission Date: 20130627
  Serious: No
  Sender: FDA-Public Use
  Company Number: US-PFIZER INC-2012323720

PATIENT
  Age: 63 Year
  Sex: Male
  Weight: 63.49 kg

DRUGS (3)
  1. CHANTIX [Suspect]
     Indication: SMOKING CESSATION THERAPY
     Dosage: 0.5 mg, 1x/day
     Route: 048
     Dates: start: 201201, end: 201201
  2. CHANTIX [Suspect]
     Dosage: 1 mg, 2x/day
     Route: 048
     Dates: start: 201201, end: 201201
  3. SIMVASTATIN [Concomitant]
     Indication: HIGH CHOLESTEROL
     Dosage: UNK

REACTIONS (1)
  - Abdominal pain upper [Recovered/Resolved]
